FAERS Safety Report 8915402 (Version 1)
Quarter: 2012Q4

REPORT INFORMATION
  Report Type: Report from Study
  Country: BE (occurrence: BE)
  Receive Date: 20121116
  Receipt Date: 20121116
  Transmission Date: 20130627
  Serious: Yes (Hospitalization)
  Sender: FDA-Public Use
  Company Number: BE-BAXTER-2012BAX023426

PATIENT
  Age: 6 Year
  Sex: Male
  Weight: 20.5 kg

DRUGS (12)
  1. HOLOXAN [Suspect]
     Indication: MALIGNANT NEOPLASM NOS
     Dosage: 3 G/M2
     Route: 042
     Dates: start: 20120414
  2. HOLOXAN [Suspect]
     Dosage: 3 G/M2
     Route: 042
     Dates: start: 20120929
  3. BEVACIZUMAB [Suspect]
     Indication: MALIGNANT NEOPLASM NOS
     Route: 042
     Dates: start: 20120414
  4. BEVACIZUMAB [Suspect]
     Route: 042
     Dates: start: 20120727
  5. DOXORUBICIN [Suspect]
     Indication: MALIGNANT NEOPLASM NOS
     Route: 042
     Dates: start: 20120414
  6. DOXORUBICIN [Suspect]
     Route: 042
     Dates: start: 20120616
  7. ACTINOMYCIN D [Suspect]
     Indication: MALIGNANT NEOPLASM NOS
     Route: 042
     Dates: start: 20120414
  8. ACTINOMYCIN D [Suspect]
     Route: 042
     Dates: start: 20120817
  9. VINCRISTINE [Suspect]
     Indication: MALIGNANT NEOPLASM NOS
     Route: 042
     Dates: start: 20120414
  10. VINCRISTINE [Suspect]
     Route: 042
     Dates: start: 20120928
  11. ZOVIRAX [Concomitant]
     Indication: DRUG USE FOR UNKNOWN INDICATION
     Route: 065
     Dates: start: 20120506
  12. EUSAPRIM FORTE [Concomitant]
     Indication: DRUG USE FOR UNKNOWN INDICATION
     Route: 065
     Dates: start: 20120506

REACTIONS (1)
  - Anal fissure [Recovered/Resolved]
